FAERS Safety Report 5024502-2 (Version None)
Quarter: 2006Q2

REPORT INFORMATION
  Report Type: 
  Country: None (occurrence: None)
  Receive Date: 20060426
  Receipt Date: 20060121
  Transmission Date: 20061013
  Serious: Yes (Other)
  Sender: FDA-Public Use
  Company Number: 2005154841

PATIENT
  Age: 83 Year
  Sex: Male

DRUGS (5)
  1. LYRICA [Suspect]
     Indication: POST HERPETIC NEURALGIA
     Dosage: 150 MG (75 MG, 2 IN 1 D), ORAL
     Route: 048
     Dates: start: 20050913
  2. METOPROLOL (METOPROLOL) [Concomitant]
  3. LOTREL [Concomitant]
  4. CELEXA [Concomitant]
  5. LIDODERM [Concomitant]

REACTIONS (2)
  - DRUG EFFECT DECREASED [None]
  - SLEEP WALKING [None]
